FAERS Safety Report 4356249-X (Version None)
Quarter: 2004Q2

REPORT INFORMATION
  Report Type: 
  Country: None (occurrence: None)
  Receive Date: 20040511
  Receipt Date: 20040426
  Transmission Date: 20050107
  Serious: Yes (Hospitalization)
  Sender: FDA-Public Use
  Company Number: FR-SHR-04-021807

PATIENT
  Age: 46 Year
  Sex: Female
  Weight: 75 kg

DRUGS (1)
  1. JASMINE (ETHINYLESTRADIOL, DROSPIRENONE) FILM TABLET [Suspect]
     Indication: ORAL CONTRACEPTION
     Dosage: 1 TAB (S), 21D/28D, ORAL
     Route: 048
     Dates: start: 20021201, end: 20040201

REACTIONS (5)
  - ADRENAL ADENOMA [None]
  - ADRENALECTOMY [None]
  - GASTRITIS [None]
  - HYPERALDOSTERONISM [None]
  - WEIGHT INCREASED [None]
